FAERS Safety Report 6411141-1 (Version None)
Quarter: 2009Q4

REPORT INFORMATION
  Report Type: 
  Country: None (occurrence: None)
  Receive Date: 20091022
  Receipt Date: 20091011
  Transmission Date: 20100525
  Serious: Yes (Other)
  Sender: FDA-Public Use
  Company Number: US-PFIZER INC-2006049212

PATIENT
  Sex: Female

DRUGS (7)
  1. DILANTIN [Suspect]
     Indication: CONVULSION
     Dosage: UNK
  2. PHENYTOIN [Suspect]
     Indication: CONVULSION
     Dosage: UNK
  3. TRILEPTAL [Concomitant]
     Route: 065
  4. CLONAZEPAM [Concomitant]
     Route: 065
  5. ZONEGRAN [Concomitant]
     Route: 065
  6. MIRALAX [Concomitant]
     Route: 065
  7. FEXOFENADINE [Concomitant]
     Route: 065

REACTIONS (6)
  - CONVULSION [None]
  - DRUG LEVEL BELOW THERAPEUTIC [None]
  - GASTROSTOMY TUBE INSERTION [None]
  - GINGIVAL HYPERPLASIA [None]
  - SOMNOLENCE [None]
  - TOOTH DISORDER [None]
